FAERS Safety Report 16164248 (Version 1)
Quarter: 2019Q2

REPORT INFORMATION
  Report Type: Report from Study
  Country: GB (occurrence: GB)
  Receive Date: 20190405
  Receipt Date: 20190405
  Transmission Date: 20190711
  Serious: Yes (Other)
  Sender: FDA-Public Use
  Company Number: PHHY2019GB068691

PATIENT
  Sex: Female

DRUGS (2)
  1. HYRIMOZ [Suspect]
     Active Substance: ADALIMUMAB-ADAZ
     Dosage: 40 MG, Q2W
     Route: 058
     Dates: start: 20190330
  2. HYRIMOZ [Suspect]
     Active Substance: ADALIMUMAB-ADAZ
     Indication: RHEUMATOID ARTHRITIS
     Dosage: 40 MG, Q2W
     Route: 058
     Dates: start: 20190302

REACTIONS (13)
  - Salivary hypersecretion [Recovering/Resolving]
  - Feeling hot [Recovered/Resolved]
  - Nausea [Recovered/Resolved]
  - Injection site pain [Recovering/Resolving]
  - Tongue pruritus [Recovering/Resolving]
  - Vomiting [Unknown]
  - Pain [Unknown]
  - Dizziness [Recovered/Resolved]
  - Headache [Recovering/Resolving]
  - Dizziness [Recovering/Resolving]
  - Discomfort [Recovering/Resolving]
  - Head discomfort [Recovering/Resolving]
  - Paraesthesia oral [Recovering/Resolving]
